FAERS Safety Report 8839989 (Version 2)
Quarter: 2012Q4

REPORT INFORMATION
  Report Type: 
  Country: US (occurrence: US)
  Receive Date: 20121015
  Receipt Date: 20121116
  Transmission Date: 20130627
  Serious: No
  Sender: FDA-Public Use
  Company Number: US-PFIZER INC-2012252779

PATIENT
  Age: 50 Year
  Sex: Female
  Weight: 136 kg

DRUGS (11)
  1. LYRICA [Suspect]
     Indication: PAIN
     Dosage: UNK
     Dates: start: 2006, end: 2007
  2. LYRICA [Suspect]
     Dosage: 75 mg, 3x/day
     Dates: start: 2009, end: 2012
  3. LYRICA [Suspect]
     Dosage: 75 mg, 3x/day
     Dates: start: 2012
  4. PREGABALIN [Suspect]
     Indication: PAIN
     Dosage: UNK
     Dates: start: 201208, end: 201208
  5. PRAVASTATIN [Concomitant]
     Indication: BLOOD CHOLESTEROL ABNORMAL
     Dosage: 40 mg, daily
  6. CYCLOBENZAPRINE [Concomitant]
     Indication: MUSCLE SPASMS
     Dosage: 10 mg, as needed
  7. CYCLOBENZAPRINE [Concomitant]
     Indication: BACK PAIN
  8. PLAVIX [Concomitant]
     Indication: CORONARY STENT PLACEMENT
     Dosage: 75 mg, daily
  9. CARVEDILOL [Concomitant]
     Indication: BLOOD PRESSURE HIGH
     Dosage: taking half of 25 mg tablet two times a day
     Route: 048
  10. TRAZODONE [Concomitant]
     Indication: DEPRESSION
     Dosage: one third of the tablet of 150 mg daily
     Route: 048
  11. TRAZODONE [Concomitant]
     Indication: SLEEP PROBLEM

REACTIONS (3)
  - Arthritis [Not Recovered/Not Resolved]
  - Drug ineffective [Unknown]
  - Expired drug administered [Unknown]
